FAERS Safety Report 5400447-0 (Version None)
Quarter: 2007Q3

REPORT INFORMATION
  Report Type: 
  Country: None (occurrence: None)
  Receive Date: 20070730
  Receipt Date: 20070720
  Transmission Date: 20080115
  Serious: Yes (Hospitalization)
  Sender: FDA-Public Use
  Company Number: D0053932A

PATIENT
  Age: 11 Year
  Sex: Male
  Weight: 48.4 kg

DRUGS (1)
  1. AUGMENTIN '125' [Suspect]
     Indication: GASTROENTERITIS
     Dosage: 10ML THREE TIMES PER DAY
     Route: 048
     Dates: start: 20070612, end: 20070621

REACTIONS (7)
  - BLOOD LACTATE DEHYDROGENASE INCREASED [None]
  - DIZZINESS [None]
  - DRUG HYPERSENSITIVITY [None]
  - GASTROINTESTINAL PAIN [None]
  - HAEMOLYTIC ANAEMIA [None]
  - HEADACHE [None]
  - RETICULOCYTOSIS [None]
